FAERS Safety Report 25155421 (Version 5)
Quarter: 2025Q3

REPORT INFORMATION
  Report Type: Report from Study
  Country: CN (occurrence: CN)
  Receive Date: 20250403
  Receipt Date: 20250904
  Transmission Date: 20251021
  Serious: Yes (Hospitalization)
  Sender: ROCHE
  Company Number: CN-ROCHE-10000159419

PATIENT
  Age: 48 Year
  Sex: Male
  Weight: 77.5 kg

DRUGS (4)
  1. BEVACIZUMAB [Suspect]
     Active Substance: BEVACIZUMAB
     Indication: Hepatic cancer
     Dosage: 100 MG (4ML)/VIAL/BOX
     Route: 042
     Dates: end: 202503
  2. TECENTRIQ [Suspect]
     Active Substance: ATEZOLIZUMAB
     Indication: Hepatic cancer
     Route: 042
     Dates: end: 202503
  3. TENOFOVIR DISOPROXIL FUMARATE [Concomitant]
     Active Substance: TENOFOVIR DISOPROXIL FUMARATE
  4. ORAL DONAFENIB [Concomitant]
     Route: 048

REACTIONS (12)
  - Pyrexia [Recovered/Resolved]
  - Back injury [Recovered/Resolved]
  - Buttock injury [Recovered/Resolved]
  - Decreased appetite [Recovering/Resolving]
  - Asthenia [Recovering/Resolving]
  - Respiratory tract infection [Recovered/Resolved]
  - Cough [Recovering/Resolving]
  - Hypoxia [Recovering/Resolving]
  - Lung disorder [Recovering/Resolving]
  - Tachypnoea [Recovering/Resolving]
  - Interstitial lung disease [Recovering/Resolving]
  - Dermatomyositis [Not Recovered/Not Resolved]

NARRATIVE: CASE EVENT DATE: 20241001
